FAERS Safety Report 9056432 (Version 1)
Quarter: 2013Q1

REPORT INFORMATION
  Report Type: Spontaneous
  Country: US (occurrence: US)
  Receive Date: 20130204
  Receipt Date: 20130204
  Transmission Date: 20140127
  Serious: Yes (Other)
  Sender: FDA-Public Use
  Company Number: US-ASTRAZENECA-2013SE05795

PATIENT
  Age: 73 Year
  Sex: Female
  Weight: 67.6 kg

DRUGS (6)
  1. NEXIUM [Suspect]
     Indication: GASTROOESOPHAGEAL REFLUX DISEASE
     Route: 048
  2. NEXIUM [Suspect]
     Indication: GASTROOESOPHAGEAL REFLUX DISEASE
     Route: 048
     Dates: start: 2010
  3. NEXIUM [Suspect]
     Indication: GASTROOESOPHAGEAL REFLUX DISEASE
     Route: 048
  4. NEXIUM [Suspect]
     Indication: GASTROOESOPHAGEAL REFLUX DISEASE
     Route: 048
  5. LEVOXYL [Concomitant]
     Indication: THYROID DISORDER
     Dosage: DAILY
     Route: 048
  6. MEDICATION FOR HIGH BLOOD PRESSURE [Concomitant]
     Indication: HYPERTENSION

REACTIONS (8)
  - Fall [Unknown]
  - Wrist fracture [Recovered/Resolved]
  - Nasopharyngitis [Recovering/Resolving]
  - Gastrooesophageal reflux disease [Recovered/Resolved]
  - Osteoporosis [Unknown]
  - Sinus disorder [Unknown]
  - Dry mouth [Unknown]
  - Headache [Recovered/Resolved]
